FAERS Safety Report 8658892 (Version 2)
Quarter: 2012Q4

REPORT INFORMATION
  Report Type: Report from Study
  Country: US (occurrence: US)
  Receive Date: 20120710
  Receipt Date: 20120915
  Transmission Date: 20130627
  Serious: Yes (Other)
  Sender: FDA-Public Use
  Company Number: US-ABBOTT-12P-163-0952550-00

PATIENT
  Age: 50 None
  Sex: Female
  Weight: 91.25 kg

DRUGS (9)
  1. HUMIRA 40 MG/0.8 ML PEN [Suspect]
     Indication: RHEUMATOID ARTHRITIS
     Dates: start: 200901, end: 20120704
  2. HUMIRA 40 MG/0.8 ML PEN [Suspect]
  3. METHOTREXATE [Suspect]
     Indication: RHEUMATOID ARTHRITIS
     Dates: start: 2008, end: 20120701
  4. METHOTREXATE [Suspect]
  5. METHOTREXATE [Suspect]
  6. FOLIC ACID [Concomitant]
     Indication: PRODUCT USED FOR UNKNOWN INDICATION
  7. TRAMADOL [Concomitant]
     Indication: PAIN
  8. TYLENOL [Concomitant]
     Indication: PAIN
  9. HYDROXYCHLOROQUINE [Concomitant]
     Indication: PRODUCT USED FOR UNKNOWN INDICATION
     Dates: start: 2009, end: 20120605

REACTIONS (4)
  - Breast mass [Unknown]
  - Breast cancer [Unknown]
  - Lymphoma [Unknown]
  - Breast cancer metastatic [Unknown]
